FAERS Safety Report 6695907-9 (Version None)
Quarter: 2010Q2

REPORT INFORMATION
  Report Type: 
  Country: None (occurrence: None)
  Receive Date: 20100422
  Receipt Date: 20100422
  Transmission Date: 20101027
  Serious: No
  Sender: FDA-Public Use
  Company Number: None

PATIENT
  Age: 52 Year
  Sex: Male
  Weight: 86.637 kg

DRUGS (1)
  1. AMBIEN [Suspect]
     Indication: INSOMNIA
     Dosage: 10 MG QHS PRN PO
     Route: 048
     Dates: start: 20100407, end: 20100412

REACTIONS (2)
  - INSOMNIA [None]
  - PRODUCT SUBSTITUTION ISSUE [None]
